FAERS Safety Report 6315334-3 (Version None)
Quarter: 2009Q3

REPORT INFORMATION
  Report Type: 
  Country: None (occurrence: None)
  Receive Date: 20090819
  Receipt Date: 20090810
  Transmission Date: 20100115
  Serious: Yes (Other)
  Sender: FDA-Public Use
  Company Number: CH-WYE-G03982409

PATIENT
  Age: 39 Year
  Sex: Female

DRUGS (3)
  1. EFFEXOR [Suspect]
     Indication: DEPRESSION
     Dosage: DOSE PROGRESSIVELY INCREASED UP TO 300 MG DAILY
  2. TEMESTA [Concomitant]
     Dosage: 1 DOSE EVERY 1 PRN
  3. TRITTICO [Concomitant]
     Indication: SLEEP DISORDER

REACTIONS (7)
  - BRUXISM [None]
  - DRY MOUTH [None]
  - ENDODONTIC PROCEDURE [None]
  - PERIODONTITIS [None]
  - POOR PERSONAL HYGIENE [None]
  - TOOTH ABSCESS [None]
  - TOOTH EXTRACTION [None]
